FAERS Safety Report 12201070 (Version 1)
Quarter: 2016Q1

REPORT INFORMATION
  Report Type: Spontaneous
  Country: US (occurrence: US)
  Receive Date: 20160322
  Receipt Date: 20160322
  Transmission Date: 20160526
  Serious: No
  Sender: FDA-Public Use
  Company Number: US-SA-2015SA077286

PATIENT
  Age: 52 Year
  Sex: Female

DRUGS (1)
  1. NASACORT ALLERGY 24HR [Suspect]
     Active Substance: TRIAMCINOLONE ACETONIDE
     Indication: HYPERSENSITIVITY
     Dosage: START DATE: 1 WEEK AGO?DOSAGE WAS MENTIONED AS 2 SPRAYS DAILY
     Route: 065
     Dates: end: 20150528

REACTIONS (4)
  - Rhinalgia [Unknown]
  - Nasal inflammation [Unknown]
  - Insomnia [Unknown]
  - Dyspnoea [Unknown]
